FAERS Safety Report 10217007 (Version 2)
Quarter: 2014Q2

REPORT INFORMATION
  Report Type: Spontaneous
  Country: IT (occurrence: IT)
  Receive Date: 20140604
  Receipt Date: 20140604
  Transmission Date: 20141212
  Serious: Yes (Other)
  Sender: FDA-Public Use
  Company Number: IT-ASTRAZENECA-2014SE33438

PATIENT
  Sex: Female

DRUGS (1)
  1. BUPIVACAINE (NON AZ PRODUCT) [Suspect]
     Route: 065

REACTIONS (2)
  - Anaesthetic complication [Recovered/Resolved]
  - Drug ineffective [Recovered/Resolved]
